FAERS Safety Report 9542384 (Version 1)
Quarter: 2013Q3

REPORT INFORMATION
  Report Type: Spontaneous
  Country: US (occurrence: US)
  Receive Date: 20130923
  Receipt Date: 20130923
  Transmission Date: 20140515
  Serious: No
  Sender: FDA-Public Use
  Company Number: US-BAYER-2013-113978

PATIENT
  Age: 59 Year
  Sex: Female
  Weight: 53.06 kg

DRUGS (3)
  1. ALEVE TABLET [Suspect]
     Indication: ANALGESIC THERAPY
     Dosage: 1/2 DF, UNK
     Route: 048
     Dates: start: 20130917
  2. B12 [Concomitant]
  3. VITAMIN C [ASCORBIC ACID] [Concomitant]

REACTIONS (3)
  - Dizziness [Not Recovered/Not Resolved]
  - Head discomfort [Not Recovered/Not Resolved]
  - Headache [Not Recovered/Not Resolved]
